FAERS Safety Report 17649295 (Version 1)
Quarter: 2020Q2

REPORT INFORMATION
  Report Type: Spontaneous
  Country: US (occurrence: US)
  Receive Date: 20200409
  Receipt Date: 20200409
  Transmission Date: 20200713
  Serious: Yes (Other)
  Sender: FDA-Public Use
  Company Number: US-SA-2020SA088101

PATIENT
  Age: 72 Year
  Sex: Male

DRUGS (3)
  1. METHOTREXATE. [Concomitant]
     Active Substance: METHOTREXATE
     Indication: RHEUMATOID ARTHRITIS
     Dosage: 7.5 MG, QW
  2. DUPILUMAB [Suspect]
     Active Substance: DUPILUMAB
     Indication: DERMATITIS ATOPIC
     Dosage: 600 MG, 1X
     Route: 058
  3. DUPILUMAB [Suspect]
     Active Substance: DUPILUMAB
     Dosage: 300 MG, QOW
     Route: 058

REACTIONS (6)
  - Skin plaque [Recovering/Resolving]
  - Unintentional use for unapproved indication [Recovering/Resolving]
  - Condition aggravated [Recovering/Resolving]
  - Rash erythematous [Recovering/Resolving]
  - Cutaneous T-cell lymphoma stage I [Recovering/Resolving]
  - Papule [Recovering/Resolving]
